FAERS Safety Report 4314277-4 (Version None)
Quarter: 2004Q1

REPORT INFORMATION
  Report Type: 
  Country: None (occurrence: None)
  Receive Date: 20040308
  Receipt Date: 20040226
  Transmission Date: 20041129
  Serious: Yes (Other)
  Sender: FDA-Public Use
  Company Number: 2004UW03555

PATIENT
  Age: 16 Year
  Sex: Male

DRUGS (1)
  1. SEROQUEL [Suspect]

REACTIONS (2)
  - ABNORMAL BEHAVIOUR [None]
  - THROMBOCYTOPENIA [None]
